FAERS Safety Report 5853264-1 (Version None)
Quarter: 2008Q3

REPORT INFORMATION
  Report Type: 
  Country: None (occurrence: None)
  Receive Date: 20080820
  Receipt Date: 20080805
  Transmission Date: 20090109
  Serious: Yes (Hospitalization)
  Sender: FDA-Public Use
  Company Number: 15106

PATIENT
  Sex: Male

DRUGS (2)
  1. MORPHINE SULFATE [Suspect]
     Indication: CANCER PAIN
     Dosage: 120 MG BID; ORALLY
     Route: 048
     Dates: start: 20080526, end: 20080601
  2. MORPHINE SULFATE [Suspect]
     Indication: PANCREATIC CARCINOMA
     Dosage: 120 MG BID; ORALLY
     Route: 048
     Dates: start: 20080526, end: 20080601

REACTIONS (8)
  - DYSARTHRIA [None]
  - DYSSTASIA [None]
  - GAIT DISTURBANCE [None]
  - HALLUCINATION, VISUAL [None]
  - HYPERSOMNIA [None]
  - OVERDOSE [None]
  - PHARMACEUTICAL PRODUCT COMPLAINT [None]
  - VOMITING [None]
